FAERS Safety Report 18532644 (Version 1)
Quarter: 2020Q4

REPORT INFORMATION
  Report Type: Report from Study
  Country: CA (occurrence: CA)
  Receive Date: 20201123
  Receipt Date: 20201123
  Transmission Date: 20210114
  Serious: Yes (Other)
  Sender: FDA-Public Use
  Company Number: CA-JNJFOC-20190720040

PATIENT
  Age: 44 Year
  Sex: Male

DRUGS (2)
  1. VANCOMYCIN [Suspect]
     Active Substance: VANCOMYCIN
     Indication: STAPHYLOCOCCAL INFECTION
     Route: 065
  2. REMICADE [Suspect]
     Active Substance: INFLIXIMAB
     Indication: CROHN^S DISEASE
     Route: 042
     Dates: start: 20090304, end: 20190527

REACTIONS (6)
  - Staphylococcal infection [Recovering/Resolving]
  - Skin lesion [Unknown]
  - Throat tightness [Unknown]
  - Arthritis bacterial [Recovering/Resolving]
  - Overgrowth fungal [Recovering/Resolving]
  - Joint injury [Recovered/Resolved]

NARRATIVE: CASE EVENT DATE: 20190712
